FAERS Safety Report 17753912 (Version 2)
Quarter: 2020Q2

REPORT INFORMATION
  Report Type: Spontaneous
  Country: CA (occurrence: CA)
  Receive Date: 20200506
  Receipt Date: 20200611
  Transmission Date: 20200714
  Serious: Yes (Death, Hospitalization)
  Sender: FDA-Public Use
  Company Number: CA-ACTELION-A-US2020-204666

PATIENT
  Age: 52 Year
  Sex: Female

DRUGS (11)
  1. ZANTAC [Concomitant]
     Active Substance: RANITIDINE HYDROCHLORIDE
  2. MULTIVITAMINUM [Concomitant]
     Active Substance: VITAMINS
  3. PANTOPRAZOLE [Concomitant]
     Active Substance: PANTOPRAZOLE
     Dosage: 40 G, QD
     Dates: start: 2017
  4. PROPRANOLOL [Concomitant]
     Active Substance: PROPRANOLOL HYDROCHLORIDE
  5. VITAMIN D3 [Concomitant]
     Active Substance: CHOLECALCIFEROL
  6. TADALAFIL. [Concomitant]
     Active Substance: TADALAFIL
     Dosage: 40 MG, QD
     Dates: start: 2013
  7. ADVAIR HFA [Concomitant]
     Active Substance: FLUTICASONE PROPIONATE\SALMETEROL XINAFOATE
  8. ALLOPURINOL. [Concomitant]
     Active Substance: ALLOPURINOL
     Dosage: 200 G, QD
     Dates: start: 2018
  9. LASIX [Concomitant]
     Active Substance: FUROSEMIDE
     Dosage: 20 G, QD
     Route: 048
     Dates: start: 2016
  10. ADCIRCA [Concomitant]
     Active Substance: TADALAFIL
  11. TRACLEER [Suspect]
     Active Substance: BOSENTAN
     Indication: PULMONARY ARTERIAL HYPERTENSION
     Dosage: 125 MG, BID
     Route: 048
     Dates: start: 20130401, end: 20200423

REACTIONS (3)
  - Pneumonia [Unknown]
  - Brain abscess [Fatal]
  - Right-to-left cardiac shunt [Fatal]

NARRATIVE: CASE EVENT DATE: 20200413
